FAERS Safety Report 7475710-2 (Version None)
Quarter: 2011Q2

REPORT INFORMATION
  Report Type: 
  Country: None (occurrence: None)
  Receive Date: 20110512
  Receipt Date: 20110503
  Transmission Date: 20111010
  Serious: Yes (Hospitalization)
  Sender: FDA-Public Use
  Company Number: CA-ROCHE-775593

PATIENT
  Sex: Male

DRUGS (10)
  1. PREDNISONE [Concomitant]
  2. PANTOLOC [Concomitant]
  3. CALCIUM [Concomitant]
  4. CELEBREX [Concomitant]
  5. FOSAMAX [Concomitant]
  6. METHOTREXATE [Concomitant]
  7. PLAQUENIL [Concomitant]
  8. OXYCONTIN [Concomitant]
  9. SUPEUDOL [Concomitant]
  10. ACTEMRA [Suspect]
     Indication: RHEUMATOID ARTHRITIS
     Route: 042
     Dates: start: 20110407

REACTIONS (1)
  - RHEUMATOID ARTHRITIS [None]
